FAERS Safety Report 12387988 (Version 1)
Quarter: 2016Q2

REPORT INFORMATION
  Report Type: Spontaneous
  Country: US (occurrence: None)
  Receive Date: 20160519
  Receipt Date: 20160519
  Transmission Date: 20160815
  Serious: Yes (Death, Hospitalization)
  Sender: FDA-Public Use
  Company Number: None

PATIENT
  Age: 62 Year
  Sex: Male
  Weight: 90.72 kg

DRUGS (1)
  1. OTEZLA [Suspect]
     Active Substance: APREMILAST
     Indication: PSORIASIS
     Route: 048

REACTIONS (7)
  - Weight decreased [None]
  - Cardiac disorder [None]
  - Hepatic cirrhosis [None]
  - Decreased appetite [None]
  - Blood bilirubin increased [None]
  - Infection [None]
  - Immune system disorder [None]

NARRATIVE: CASE EVENT DATE: 20150523
